FAERS Safety Report 8573846-6 (Version None)
Quarter: 2012Q3

REPORT INFORMATION
  Report Type: 
  Country: None (occurrence: None)
  Receive Date: 20120806
  Receipt Date: 20111017
  Transmission Date: 20120928
  Serious: No
  Sender: FDA-Public Use
  Company Number: US-GLAXOSMITHKLINE-A0949344A

PATIENT
  Age: 69 Year
  Sex: Male

DRUGS (4)
  1. ALLERGY INJECTION (UNSPECIFIED) [Concomitant]
  2. FLUTICASONE PROPIONATE [Suspect]
     Indication: ASTHMA
     Dosage: 2PUFF TWICE PER DAY
     Route: 055
     Dates: start: 20111016
  3. ONE A DAY VITAMIN [Concomitant]
  4. ASPIRIN [Concomitant]

REACTIONS (5)
  - APHONIA [None]
  - DRY MOUTH [None]
  - DYSPNOEA [None]
  - TONGUE DRY [None]
  - RESPIRATORY TRACT CONGESTION [None]
